FAERS Safety Report 7070299-4 (Version None)
Quarter: 2010Q4

REPORT INFORMATION
  Report Type: 
  Country: None (occurrence: None)
  Receive Date: 20101028
  Receipt Date: 20101007
  Transmission Date: 20110411
  Serious: No
  Sender: FDA-Public Use
  Company Number: US-WYE-H18044410

PATIENT
  Age: 82 Year
  Sex: Male
  Weight: 79.45 kg

DRUGS (3)
  1. ADVIL [Suspect]
     Indication: SCIATICA
     Dosage: ONE TABLET EVERY FOUR TO SIX HOURS, NO MORE THEN 3
     Route: 048
     Dates: start: 20101003
  2. ADVIL [Suspect]
     Indication: PAIN
  3. HYDROCHLOROTHIAZIDE [Concomitant]

REACTIONS (2)
  - CONSTIPATION [None]
  - DRUG INEFFECTIVE [None]
